FAERS Safety Report 8466766 (Version 3)
Quarter: 2014Q1

REPORT INFORMATION
  Report Type: Spontaneous
  Country: US (occurrence: US)
  Receive Date: 20120320
  Receipt Date: 20140314
  Transmission Date: 20141002
  Serious: Yes (Hospitalization, Other)
  Sender: FDA-Public Use
  Company Number: US-BAYER-2012-023901

PATIENT
  Age: 24 Year
  Sex: Female
  Weight: 70.3 kg

DRUGS (8)
  1. YAZ [Suspect]
     Indication: ACNE
     Dosage: UNK
     Dates: start: 2007, end: 2009
  2. YASMIN [Suspect]
     Indication: ACNE
     Dosage: UNK
     Dates: start: 2007, end: 2009
  3. METHYLPREDNISOLONE [METHYLPREDNISOLONE] [Concomitant]
     Dosage: 4 MG, UNK
     Dates: start: 20080202
  4. AMOXICILINA CLAV [Concomitant]
     Dosage: 875 MG, BID
     Dates: start: 20080202
  5. AMOXICILLIN [Concomitant]
     Indication: UPPER RESPIRATORY TRACT INFECTION
     Dosage: UNK
     Dates: start: 20080212
  6. PHENERGAN [Concomitant]
     Dosage: 25 MG, PRN
     Route: 048
  7. DILAUDID [Concomitant]
     Dosage: 1 MG, UNK
     Route: 042
  8. PERCOCET [Concomitant]
     Dosage: 375 MG, 1-2 TABLETS EVERY 4-6 HOURS
     Route: 048

REACTIONS (2)
  - Cholecystectomy [None]
  - Cholecystitis acute [Recovered/Resolved]
